FAERS Safety Report 8288041-8 (Version None)
Quarter: 2012Q2

REPORT INFORMATION
  Report Type: 
  Country: None (occurrence: None)
  Receive Date: 20120416
  Receipt Date: 20120411
  Transmission Date: 20120825
  Serious: Yes (Life-Threatening, Hospitalization)
  Sender: FDA-Public Use
  Company Number: IT-GLAXOSMITHKLINE-B0795313A

PATIENT
  Sex: Female
  Weight: 54 kg

DRUGS (1)
  1. VOTRIENT [Suspect]
     Indication: TRANSITIONAL CELL CANCER OF THE RENAL PELVIS AND URETER
     Route: 048

REACTIONS (1)
  - VAGINAL FISTULA [None]
